FAERS Safety Report 9034974 (Version 1)
Quarter: 2013Q1

REPORT INFORMATION
  Report Type: Spontaneous
  Country: DK (occurrence: None)
  Receive Date: 20130118
  Receipt Date: 20130118
  Transmission Date: 20140127
  Serious: Yes (Other)
  Sender: FDA-Public Use
  Company Number: 2013MA000391

PATIENT
  Age: 67 Year
  Sex: Male

DRUGS (2)
  1. ASPIRIN\BUTALBITAL\CAFFEINE [Suspect]
     Indication: CARDIAC OPERATION
     Route: 048
     Dates: start: 201111
  2. CLOPIDOGREL (CLOPIDOGREL) [Suspect]
     Indication: CARDIAC OPERATION
     Route: 048
     Dates: start: 201111

REACTIONS (4)
  - Epistaxis [None]
  - Intentional drug misuse [None]
  - Drug interaction [None]
  - Incorrect drug administration duration [None]
